FAERS Safety Report 14651137 (Version 5)
Quarter: 2019Q1

REPORT INFORMATION
  Report Type: Report from Study
  Country: US (occurrence: US)
  Receive Date: 20180316
  Receipt Date: 20190325
  Transmission Date: 20190417
  Serious: Yes (Other)
  Sender: FDA-Public Use
  Company Number: PHEH2018US010451

PATIENT
  Sex: Male

DRUGS (1)
  1. COSENTYX [Suspect]
     Active Substance: SECUKINUMAB
     Indication: PRODUCT USED FOR UNKNOWN INDICATION
     Route: 065

REACTIONS (10)
  - Therapeutic response unexpected [Unknown]
  - Arthralgia [Unknown]
  - Stress [Unknown]
  - Psoriatic arthropathy [Unknown]
  - Pain [Unknown]
  - Intervertebral disc degeneration [Unknown]
  - Influenza [Unknown]
  - Arthritis [Unknown]
  - Immune system disorder [Unknown]
  - Psoriasis [Unknown]
